FAERS Safety Report 4871914-3 (Version None)
Quarter: 2005Q4

REPORT INFORMATION
  Report Type: 
  Country: None (occurrence: None)
  Receive Date: 20051230
  Receipt Date: 20051219
  Transmission Date: 20060501
  Serious: Yes (Hospitalization)
  Sender: FDA-Public Use
  Company Number: 2005171209

PATIENT
  Age: 68 Year
  Sex: Female

DRUGS (4)
  1. ALPRAZOLAM [Suspect]
     Indication: INSOMNIA
     Dosage: 2 MG (1 MG 2 IN 1 D) ORAL
     Route: 048
     Dates: end: 20051201
  2. SYNTHROID [Concomitant]
  3. PRIMIDONE [Concomitant]
  4. CEBRILIN (PAROXETINE HYDROCHLORIDE) [Concomitant]

REACTIONS (2)
  - DRUG INEFFECTIVE [None]
  - PULMONARY EMBOLISM [None]
